FAERS Safety Report 5951349-2 (Version None)
Quarter: 2008Q4

REPORT INFORMATION
  Report Type: 
  Country: None (occurrence: None)
  Receive Date: 20081111
  Receipt Date: 20081111
  Transmission Date: 20090506
  Serious: Yes (Hospitalization, Disabling)
  Sender: FDA-Public Use
  Company Number: None

PATIENT
  Age: 57 Year
  Sex: Male
  Weight: 92.9874 kg

DRUGS (1)
  1. ROPIVACAINE [Suspect]
     Indication: NERVE BLOCK
     Dosage: 14 ML ONCE OTHER
     Route: 050
     Dates: start: 20080924, end: 20080924

REACTIONS (4)
  - CONVULSION [None]
  - EYE MOVEMENT DISORDER [None]
  - SOMNOLENCE [None]
  - TONIC CLONIC MOVEMENTS [None]
